FAERS Safety Report 5399838-6 (Version None)
Quarter: 2007Q3

REPORT INFORMATION
  Report Type: 
  Country: None (occurrence: None)
  Receive Date: 20070730
  Receipt Date: 20070717
  Transmission Date: 20080115
  Serious: Yes (Hospitalization, Other)
  Sender: FDA-Public Use
  Company Number: PHHO2007BE10055

PATIENT
  Sex: Female

DRUGS (3)
  1. EXJADE [Suspect]
     Indication: IRON OVERLOAD
     Dosage: UNKNOWN
     Route: 048
  2. DESFERAL [Concomitant]
     Indication: THALASSAEMIA
  3. CAFERGOT [Suspect]

REACTIONS (4)
  - ABDOMINAL PAIN LOWER [None]
  - COLITIS ISCHAEMIC [None]
  - DIARRHOEA [None]
  - LARGE INTESTINAL ULCER [None]
